FAERS Safety Report 5717301-7 (Version None)
Quarter: 2008Q2

REPORT INFORMATION
  Report Type: 
  Country: None (occurrence: None)
  Receive Date: 20080425
  Receipt Date: 20080415
  Transmission Date: 20081010
  Serious: Yes (Other)
  Sender: FDA-Public Use
  Company Number: US-RB-000778-08

PATIENT
  Sex: Female

DRUGS (5)
  1. SUBOXONE [Suspect]
     Route: 060
     Dates: start: 20070701, end: 20070701
  2. TRILEPTAL [Concomitant]
     Indication: BIPOLAR DISORDER
     Dosage: UNKNOWN DOSAGE
  3. PAXIL [Concomitant]
     Indication: DEPRESSION
     Dosage: UNKNOWN DOSAGE
     Route: 048
  4. KLONOPIN [Concomitant]
     Dosage: UNKNOWN DOSAGE
     Route: 048
  5. SYNTHROID [Concomitant]
     Dosage: UNKNOWN DOSAGE

REACTIONS (2)
  - CONVULSION [None]
  - WITHDRAWAL SYNDROME [None]
